FAERS Safety Report 22128130 (Version 1)
Quarter: 2023Q1

REPORT INFORMATION
  Report Type: Spontaneous
  Country: US (occurrence: US)
  Receive Date: 20230323
  Receipt Date: 20230323
  Transmission Date: 20230418
  Serious: No
  Sender: FDA-Public Use
  Company Number: US-ALLERGAN-2239455US

PATIENT
  Sex: Female

DRUGS (2)
  1. VRAYLAR [Suspect]
     Active Substance: CARIPRAZINE
     Indication: Hidradenitis
     Dosage: 4.5 MG, QD
     Route: 048
  2. TRAZODONE [Concomitant]
     Active Substance: TRAZODONE HYDROCHLORIDE
     Indication: Psychophysiologic insomnia
     Dosage: UNK

REACTIONS (12)
  - Stress [Unknown]
  - Hyperacusis [Unknown]
  - Dissociation [Unknown]
  - Depersonalisation/derealisation disorder [Unknown]
  - Nightmare [Unknown]
  - Sleep talking [Unknown]
  - Anxiety [Unknown]
  - Sleep disorder [Unknown]
  - Exercise lack of [Unknown]
  - Off label use [Unknown]
  - Fatigue [Unknown]
  - Headache [Unknown]
